FAERS Safety Report 15888432 (Version 1)
Quarter: 2019Q1

REPORT INFORMATION
  Report Type: Spontaneous
  Country: US (occurrence: US)
  Receive Date: 20190130
  Receipt Date: 20190130
  Transmission Date: 20190417
  Serious: Yes (Other)
  Sender: FDA-Public Use
  Company Number: None

PATIENT
  Age: 37 Year
  Sex: Female
  Weight: 83.6 kg

DRUGS (1)
  1. PROCHLORPERAZINE. [Suspect]
     Active Substance: PROCHLORPERAZINE
     Indication: NAUSEA
     Dosage: ?          OTHER FREQUENCY:ONCE;?
     Route: 040

REACTIONS (1)
  - Seizure like phenomena [None]

NARRATIVE: CASE EVENT DATE: 20190125
